FAERS Safety Report 13273569 (Version 3)
Quarter: 2017Q1

REPORT INFORMATION
  Report Type: Spontaneous
  Country: FR (occurrence: FR)
  Receive Date: 20170227
  Receipt Date: 20170316
  Transmission Date: 20170428
  Serious: Yes (Hospitalization, Other)
  Sender: FDA-Public Use
  Company Number: FR-PFIZER INC-2017077766

PATIENT
  Age: 82 Year
  Sex: Female

DRUGS (4)
  1. HYDREA [Concomitant]
     Active Substance: HYDROXYUREA
     Dosage: 11 DF, WEEKLY
  2. HYDREA [Concomitant]
     Active Substance: HYDROXYUREA
     Dosage: 10 DF, DAILY
  3. ARACYTINE [Suspect]
     Active Substance: CYTARABINE
     Indication: MYELOPROLIFERATIVE NEOPLASM
     Dosage: 20 MG, 2X/DAY EVERY 12 HOURS
     Route: 058
     Dates: start: 20161017, end: 201610
  4. ARACYTINE [Suspect]
     Active Substance: CYTARABINE
     Dosage: 100 MG, 2X/DAY IN THE MORNING AND IN THE EVENING
     Route: 058
     Dates: start: 20161021, end: 20161024

REACTIONS (6)
  - Drug prescribing error [Recovered/Resolved]
  - Anaemia [Unknown]
  - Thrombocytopenia [Recovered/Resolved]
  - Oral mucosal blistering [Recovered/Resolved]
  - Conjunctivitis [Recovering/Resolving]
  - Febrile neutropenia [Not Recovered/Not Resolved]

NARRATIVE: CASE EVENT DATE: 201610
